FAERS Safety Report 5357309-7 (Version None)
Quarter: 2007Q2

REPORT INFORMATION
  Report Type: 
  Country: None (occurrence: None)
  Receive Date: 20070614
  Receipt Date: 20070607
  Transmission Date: 20071010
  Serious: Yes (Congenital Anomaly)
  Sender: FDA-Public Use
  Company Number: GB-JNJFOC-20061204636

PATIENT

DRUGS (4)
  1. RISPERDAL [Suspect]
  2. RISPERDAL [Suspect]
     Indication: DRUG EXPOSURE DURING PREGNANCY
  3. IRON SULPHATE [Concomitant]
     Indication: DRUG EXPOSURE DURING PREGNANCY
  4. FOLIC ACID [Concomitant]
     Indication: DRUG EXPOSURE DURING PREGNANCY

REACTIONS (1)
  - CONGENITAL TERATOMA [None]
